FAERS Safety Report 8303878-4 (Version None)
Quarter: 2012Q2

REPORT INFORMATION
  Report Type: 
  Country: None (occurrence: None)
  Receive Date: 20120423
  Receipt Date: 20120418
  Transmission Date: 20120825
  Serious: Yes (Hospitalization)
  Sender: FDA-Public Use
  Company Number: PHHY2012DE023210

PATIENT
  Sex: Female

DRUGS (1)
  1. MYFORTIC [Suspect]
     Dosage: UNK UKN, UNK
     Route: 048

REACTIONS (2)
  - NERVOUS SYSTEM DISORDER [None]
  - CONVULSION [None]
